FAERS Safety Report 6060836-0 (Version None)
Quarter: 2009Q1

REPORT INFORMATION
  Report Type: 
  Country: None (occurrence: None)
  Receive Date: 20090202
  Receipt Date: 20090129
  Transmission Date: 20090719
  Serious: Yes (Life-Threatening, Hospitalization)
  Sender: FDA-Public Use
  Company Number: PHHY2009ES03062

PATIENT
  Sex: Female

DRUGS (2)
  1. EXJADE [Suspect]
     Dosage: UNK
     Dates: start: 20080929
  2. REVLIMID [Interacting]

REACTIONS (4)
  - BRONCHOSPASM [None]
  - DRUG INTERACTION [None]
  - PLATELET COUNT DECREASED [None]
  - RASH GENERALISED [None]
